FAERS Safety Report 24586035 (Version 3)
Quarter: 2024Q4

REPORT INFORMATION
  Report Type: Spontaneous
  Country: CA (occurrence: CA)
  Receive Date: 20241106
  Receipt Date: 20241125
  Transmission Date: 20250114
  Serious: Yes (Other)
  Sender: EISAI
  Company Number: CA-Eisai-EC-2024-177718

PATIENT
  Age: 60 Year
  Sex: Male

DRUGS (1)
  1. LENVIMA [Suspect]
     Active Substance: LENVATINIB
     Indication: Thyroid cancer
     Route: 048

REACTIONS (1)
  - Myxofibrosarcoma [Not Recovered/Not Resolved]

NARRATIVE: CASE EVENT DATE: 20240829
